FAERS Safety Report 19018859 (Version 2)
Quarter: 2021Q2

REPORT INFORMATION
  Report Type: Report from Study
  Country: US (occurrence: US)
  Receive Date: 20210317
  Receipt Date: 20210429
  Transmission Date: 20210717
  Serious: No
  Sender: FDA-Public Use
  Company Number: US-SA-2021SA076402

PATIENT
  Age: 47 Year
  Sex: Female

DRUGS (2)
  1. DUPIXENT [Suspect]
     Active Substance: DUPILUMAB
     Indication: DERMATITIS ATOPIC
     Dosage: 600 MG, 1X
     Route: 058
     Dates: start: 202102, end: 202102
  2. DUPIXENT [Suspect]
     Active Substance: DUPILUMAB
     Dosage: 300 MG, QOW
     Route: 058
     Dates: start: 2021

REACTIONS (11)
  - Ligament sprain [Unknown]
  - Rash erythematous [Unknown]
  - Fall [Unknown]
  - Joint swelling [Unknown]
  - Rash [Unknown]
  - Injection site pain [Unknown]
  - Product storage error [Unknown]
  - Joint instability [Unknown]
  - Joint injury [Unknown]
  - Wound [Unknown]
  - Pruritus [Unknown]

NARRATIVE: CASE EVENT DATE: 2021
